FAERS Safety Report 9141846 (Version 1)
Quarter: 2013Q1

REPORT INFORMATION
  Report Type: Spontaneous
  Country: US (occurrence: US)
  Receive Date: 20130305
  Receipt Date: 20130305
  Transmission Date: 20140127
  Serious: No
  Sender: FDA-Public Use
  Company Number: US-AMGEN-USASP2013009239

PATIENT
  Age: 30 Year
  Sex: Female
  Weight: 131.97 kg

DRUGS (6)
  1. ENBREL [Suspect]
     Indication: RHEUMATOID ARTHRITIS
     Dosage: 50 MG, QWK
     Route: 058
     Dates: start: 20130111, end: 20130125
  2. GABAPENTIN [Concomitant]
     Dosage: UNK
     Route: 048
  3. PLAQUENIL                          /00072602/ [Concomitant]
     Route: 048
  4. VICODIN [Concomitant]
     Route: 048
  5. IBUPROFEN [Concomitant]
     Route: 048
  6. ALPRAZOLAM [Concomitant]
     Route: 048

REACTIONS (3)
  - Fatigue [Recovered/Resolved]
  - Somnolence [Recovered/Resolved]
  - Pain in extremity [Not Recovered/Not Resolved]
